FAERS Safety Report 8421052-8 (Version None)
Quarter: 2012Q2

REPORT INFORMATION
  Report Type: 
  Country: None (occurrence: None)
  Receive Date: 20120608
  Receipt Date: 20120604
  Transmission Date: 20120825
  Serious: Yes (Other)
  Sender: FDA-Public Use
  Company Number: CA-US-EMD SERONO, INC.-7004899

PATIENT
  Sex: Female

DRUGS (6)
  1. REBIF [Suspect]
     Indication: RELAPSING-REMITTING MULTIPLE SCLEROSIS
     Route: 058
     Dates: start: 20060407, end: 20090501
  2. OMEPRAZOLE (PRISOLEC) [Concomitant]
     Indication: PRODUCT USED FOR UNKNOWN INDICATION
  3. REBIF [Suspect]
     Route: 058
     Dates: start: 20100511, end: 20110101
  4. IBUPROFEN (ADVIL) [Concomitant]
     Indication: PRODUCT USED FOR UNKNOWN INDICATION
  5. NUVARING [Concomitant]
     Indication: PRODUCT USED FOR UNKNOWN INDICATION
  6. PREDNISONE [Concomitant]
     Indication: PRODUCT USED FOR UNKNOWN INDICATION

REACTIONS (20)
  - INJECTION SITE PAIN [None]
  - MULTIPLE SCLEROSIS RELAPSE [None]
  - MALAISE [None]
  - INJECTION SITE NERVE DAMAGE [None]
  - VOMITING IN PREGNANCY [None]
  - FATIGUE [None]
  - INCORRECT DOSE ADMINISTERED BY DEVICE [None]
  - FACIAL PAIN [None]
  - DEVICE FAILURE [None]
  - PYREXIA [None]
  - NORMAL NEWBORN [None]
  - HYPOAESTHESIA [None]
  - INFLUENZA LIKE ILLNESS [None]
  - INJECTION SITE URTICARIA [None]
  - MATERNAL EXPOSURE DURING PREGNANCY [None]
  - BURNING SENSATION [None]
  - MUSCULAR WEAKNESS [None]
  - ACCIDENTAL OVERDOSE [None]
  - DEVICE COMPUTER ISSUE [None]
  - PREGNANCY WITH CONTRACEPTIVE DEVICE [None]
